FAERS Safety Report 12620379 (Version 1)
Quarter: 2016Q3

REPORT INFORMATION
  Report Type: Spontaneous
  Country: US (occurrence: US)
  Receive Date: 20160803
  Receipt Date: 20160803
  Transmission Date: 20161109
  Serious: No
  Sender: FDA-Public Use
  Company Number: US-ASTRAZENECA-2016SE71285

PATIENT
  Age: 24440 Day
  Sex: Male

DRUGS (2)
  1. BYDUREON [Suspect]
     Active Substance: EXENATIDE
     Route: 065
     Dates: start: 20160627
  2. HUMULIN INSULIN [Concomitant]
     Active Substance: INSULIN HUMAN

REACTIONS (5)
  - Discomfort [Unknown]
  - Eructation [Unknown]
  - Fatigue [Unknown]
  - Blood glucose increased [Unknown]
  - Dizziness [Unknown]

NARRATIVE: CASE EVENT DATE: 20160628
